FAERS Safety Report 18696483 (Version 1)
Quarter: 2021Q1

REPORT INFORMATION
  Report Type: Spontaneous
  Country: US (occurrence: US)
  Receive Date: 20210104
  Receipt Date: 20210104
  Transmission Date: 20210419
  Serious: No
  Sender: FDA-Public Use
  Company Number: US-UPSHER-SMITH LABORATORIES, LLC-2020USL00618

PATIENT
  Sex: Male

DRUGS (1)
  1. KLOR?CON M [Suspect]
     Active Substance: POTASSIUM CHLORIDE
     Indication: BLOOD POTASSIUM DECREASED
     Dosage: 20 MEQ, 1X/DAY
     Route: 048
     Dates: start: 202010, end: 20201107

REACTIONS (5)
  - Speech disorder [Not Recovered/Not Resolved]
  - Oral administration complication [Recovered/Resolved]
  - Hypoaesthesia oral [Not Recovered/Not Resolved]
  - Tongue biting [Not Recovered/Not Resolved]
  - Wrong technique in product usage process [Recovered/Resolved]

NARRATIVE: CASE EVENT DATE: 20201105
